FAERS Safety Report 8219057-5 (Version None)
Quarter: 2012Q1

REPORT INFORMATION
  Report Type: 
  Country: None (occurrence: None)
  Receive Date: 20120319
  Receipt Date: 20120312
  Transmission Date: 20120608
  Serious: Yes (Other)
  Sender: FDA-Public Use
  Company Number: US-ABBOTT-12P-163-0914443-00

PATIENT
  Age: 47 Year
  Sex: Male

DRUGS (3)
  1. NORVIR [Suspect]
     Indication: HIV INFECTION
  2. EPZICOM [Suspect]
     Indication: HIV INFECTION
  3. REYATAZ [Suspect]
     Indication: HIV INFECTION

REACTIONS (1)
  - VIRAL LOAD INCREASED [None]
